FAERS Safety Report 6872655-3 (Version None)
Quarter: 2010Q3

REPORT INFORMATION
  Report Type: 
  Country: None (occurrence: None)
  Receive Date: 20100723
  Receipt Date: 20081113
  Transmission Date: 20110219
  Serious: Yes (Other)
  Sender: FDA-Public Use
  Company Number: US-PFIZER INC-2008085309

PATIENT
  Sex: Female

DRUGS (2)
  1. CHANTIX [Suspect]
  2. OXYGEN [Concomitant]

REACTIONS (3)
  - MYOCARDIAL INFARCTION [None]
  - STRESS [None]
  - UNEVALUABLE EVENT [None]
